FAERS Safety Report 7138548-1 (Version None)
Quarter: 2010Q4

REPORT INFORMATION
  Report Type: 
  Country: None (occurrence: None)
  Receive Date: 20101206
  Receipt Date: 20101123
  Transmission Date: 20110411
  Serious: Yes (Hospitalization)
  Sender: FDA-Public Use
  Company Number: FR-ELI_LILLY_AND_COMPANY-FR201011005925

PATIENT
  Sex: Female

DRUGS (7)
  1. GEMZAR [Suspect]
     Indication: LUNG NEOPLASM MALIGNANT
     Route: 042
     Dates: start: 20100426, end: 20100903
  2. ROPINIROLE HYDROCHLORIDE [Concomitant]
     Dosage: 2 MG, 2/D
  3. EZETIMIBE/SIMVASTATIN [Concomitant]
  4. RIVOTRIL [Concomitant]
  5. MEPRONIZINE [Concomitant]
     Dosage: 2 AT NIGHT
  6. TELMISARTAN AND HYDROCHLOROTHIAZIDE [Concomitant]
     Dosage: 80 MG, UNK
  7. FUROSEMIDE [Concomitant]
     Dosage: 60 MG, UNK

REACTIONS (3)
  - ERYSIPELOID [None]
  - INFLAMMATION [None]
  - PANCYTOPENIA [None]
